FAERS Safety Report 7403666-7 (Version None)
Quarter: 2011Q2

REPORT INFORMATION
  Report Type: 
  Country: None (occurrence: None)
  Receive Date: 20110408
  Receipt Date: 20110328
  Transmission Date: 20111010
  Serious: Yes (Other)
  Sender: FDA-Public Use
  Company Number: PHHY2011MX25408

PATIENT
  Age: 75 Year
  Sex: Female

DRUGS (1)
  1. CO-DIOVAN [Suspect]
     Indication: HYPERTENSION
     Dosage: 1 DF, (80/12.5 MG) PER DAY
     Dates: start: 20030301

REACTIONS (5)
  - ANKLE FRACTURE [None]
  - DERMATITIS [None]
  - LIMB INJURY [None]
  - JOINT SPRAIN [None]
  - HYPERTENSION [None]
